FAERS Safety Report 10252507 (Version 2)
Quarter: 2014Q2

REPORT INFORMATION
  Report Type: Spontaneous
  Country: US (occurrence: US)
  Receive Date: 20140623
  Receipt Date: 20140623
  Transmission Date: 20141212
  Serious: Yes (Other)
  Sender: FDA-Public Use
  Company Number: US-MYLANLABS-2014S1014265

PATIENT
  Sex: Male

DRUGS (1)
  1. EXTENDED PHENYTOIN SODIUM CAPSULES, USP [Suspect]

REACTIONS (1)
  - Convulsion [Not Recovered/Not Resolved]
